FAERS Safety Report 7879224-7 (Version None)
Quarter: 2011Q4

REPORT INFORMATION
  Report Type: 
  Country: None (occurrence: None)
  Receive Date: 20111101
  Receipt Date: 20111027
  Transmission Date: 20120403
  Serious: Yes (Other)
  Sender: FDA-Public Use
  Company Number: AU-PFIZER INC-2011264925

PATIENT
  Sex: Female

DRUGS (5)
  1. VITAMIN D [Concomitant]
     Dosage: UNK
  2. LEVOTHYROXINE SODIUM [Concomitant]
     Dosage: UNK
  3. PANADOL OSTEO [Concomitant]
     Dosage: UNK
  4. LYRICA [Suspect]
     Dosage: 75 MG, UNK
     Dates: start: 20110101, end: 20110101
  5. MOVIPREP [Concomitant]
     Dosage: UNK

REACTIONS (7)
  - SPEECH DISORDER [None]
  - DISTURBANCE IN ATTENTION [None]
  - FEELING ABNORMAL [None]
  - FLUID RETENTION [None]
  - HYPOGLYCAEMIA [None]
  - FATIGUE [None]
  - SEDATION [None]
